FAERS Safety Report 13781505 (Version 4)
Quarter: 2017Q4

REPORT INFORMATION
  Report Type: Spontaneous
  Country: US (occurrence: US)
  Receive Date: 20170724
  Receipt Date: 20171102
  Transmission Date: 20180320
  Serious: Yes (Hospitalization, Other)
  Sender: FDA-Public Use
  Company Number: US-SUN PHARMACEUTICAL INDUSTRIES LTD-2017US-145913

PATIENT
  Age: 84 Year
  Sex: Male

DRUGS (2)
  1. DONEPEZIL. [Suspect]
     Active Substance: DONEPEZIL
     Indication: PRODUCT USED FOR UNKNOWN INDICATION
     Dosage: 5 MG, DAILY
     Route: 048
  2. DONEPEZIL. [Suspect]
     Active Substance: DONEPEZIL
     Indication: PRODUCT USED FOR UNKNOWN INDICATION
     Dosage: 7 DOSES OF DAILY 5MG TABLET DONEPEZIL
     Route: 048

REACTIONS (10)
  - Nausea [Unknown]
  - Accidental overdose [Unknown]
  - Diarrhoea [Unknown]
  - Bradycardia [Recovered/Resolved]
  - Salivary hypersecretion [Unknown]
  - Confusional state [Unknown]
  - Fatigue [Unknown]
  - Vomiting [Unknown]
  - Hyperhidrosis [Unknown]
  - Electrocardiogram QT prolonged [Recovered/Resolved]
